FAERS Safety Report 11395623 (Version 1)
Quarter: 2015Q3

REPORT INFORMATION
  Report Type: Spontaneous
  Country: US (occurrence: US)
  Receive Date: 20150819
  Receipt Date: 20150819
  Transmission Date: 20151125
  Serious: No
  Sender: FDA-Public Use
  Company Number: US-JNJFOC-20150500984

PATIENT
  Sex: Female

DRUGS (1)
  1. TYLENOL WITH CODEINE [Suspect]
     Active Substance: ACETAMINOPHEN\CODEINE PHOSPHATE
     Indication: OSTEOARTHRITIS
     Dosage: 300 MG / 30 MG/ TABLETS/ -/ 1-2 EVERY 6 HOURS
     Route: 048
     Dates: end: 20150313

REACTIONS (3)
  - Gastric disorder [Unknown]
  - Rash [Unknown]
  - Drug effect decreased [Recovered/Resolved]
